FAERS Safety Report 13381822 (Version 1)
Quarter: 2017Q1

REPORT INFORMATION
  Report Type: Spontaneous
  Country: US (occurrence: US)
  Receive Date: 20170329
  Receipt Date: 20170329
  Transmission Date: 20170429
  Serious: No
  Sender: FDA-Public Use
  Company Number: None

PATIENT
  Age: 46 Year
  Sex: Male
  Weight: 99 kg

DRUGS (5)
  1. GLUCOSAMINE (BIOFLEX) [Concomitant]
  2. CIALIS [Suspect]
     Active Substance: TADALAFIL
     Indication: BACK PAIN
     Dosage: ?          QUANTITY:1 TABLET(S);?
     Route: 048
     Dates: start: 20170317, end: 20170325
  3. CIALIS [Suspect]
     Active Substance: TADALAFIL
     Indication: PAIN IN EXTREMITY
     Dosage: ?          QUANTITY:1 TABLET(S);?
     Route: 048
     Dates: start: 20170317, end: 20170325
  4. FISH OIL [Concomitant]
     Active Substance: FISH OIL
  5. CIALIS [Suspect]
     Active Substance: TADALAFIL
     Indication: ARTHRALGIA
     Dosage: ?          QUANTITY:1 TABLET(S);?
     Route: 048
     Dates: start: 20170317, end: 20170325

REACTIONS (4)
  - Sleep disorder [None]
  - Pain in extremity [None]
  - Arthralgia [None]
  - Back pain [None]

NARRATIVE: CASE EVENT DATE: 20170324
